FAERS Safety Report 8477254-8 (Version None)
Quarter: 2012Q2

REPORT INFORMATION
  Report Type: 
  Country: None (occurrence: None)
  Receive Date: 20120629
  Receipt Date: 20120619
  Transmission Date: 20120825
  Serious: Yes (Hospitalization, Other)
  Sender: FDA-Public Use
  Company Number: US-JNJFOC-20110709683

PATIENT
  Sex: Male

DRUGS (5)
  1. MANY OTHER UNSPECIFIED MEDICATIONS [Concomitant]
     Route: 065
  2. DURAGESIC-100 [Suspect]
     Indication: ARTHRALGIA
     Route: 062
  3. DURAGESIC-100 [Suspect]
     Route: 062
  4. DURAGESIC-100 [Suspect]
     Dosage: 75 MCG; 1;7
     Route: 062
     Dates: start: 20100101
  5. DURAGESIC-100 [Suspect]
     Route: 062

REACTIONS (8)
  - WEIGHT DECREASED [None]
  - DRUG DOSE OMISSION [None]
  - KIDNEY INFECTION [None]
  - URINARY TRACT INFECTION [None]
  - PRODUCT QUALITY ISSUE [None]
  - ARTHROPATHY [None]
  - PAIN [None]
  - GROIN ABSCESS [None]
